FAERS Safety Report 25368589 (Version 1)
Quarter: 2025Q2

REPORT INFORMATION
  Report Type: Spontaneous
  Country: CN (occurrence: CN)
  Receive Date: 20250528
  Receipt Date: 20250528
  Transmission Date: 20250717
  Serious: Yes (Death, Life-Threatening, Hospitalization, Other)
  Sender: PFIZER
  Company Number: CN-MLMSERVICE-20250519-PI514398-00270-1

PATIENT
  Age: 23 Year
  Sex: Male

DRUGS (6)
  1. METHYLPREDNISOLONE [Suspect]
     Active Substance: METHYLPREDNISOLONE
     Indication: Haemophagocytic lymphohistiocytosis
     Dosage: 15 MG/KG, 1X/DAY, DAY 1-3
     Dates: start: 202307, end: 2023
  2. METHYLPREDNISOLONE [Suspect]
     Active Substance: METHYLPREDNISOLONE
     Dosage: 0.75 MG/KG, 1X/DAY, DAY 4-7
     Dates: start: 2023, end: 2023
  3. METHYLPREDNISOLONE [Suspect]
     Active Substance: METHYLPREDNISOLONE
     Dosage: 0.25 MG/KG, 1X/DAY, DAY 8-10
     Dates: start: 2023, end: 2023
  4. METHYLPREDNISOLONE [Suspect]
     Active Substance: METHYLPREDNISOLONE
     Dosage: 0.1 MG/KG, 1X/DAY, DAY 11-14
     Dates: start: 2023, end: 202308
  5. DOXORUBICIN HYDROCHLORIDE [Suspect]
     Active Substance: DOXORUBICIN HYDROCHLORIDE
     Indication: Haemophagocytic lymphohistiocytosis
     Dosage: 25 MG/M2, 1X/DAY, DAY 1, REPEATED EVERY 2 WEEKS
     Dates: start: 202307
  6. ETOPOSIDE [Suspect]
     Active Substance: ETOPOSIDE
     Indication: Haemophagocytic lymphohistiocytosis
     Dosage: 100 MG/M2, WEEKLY, FIRST DAY OF EVERY WEEK, REPEATED EVERY 2 WEEKS
     Dates: start: 202307

REACTIONS (5)
  - Cerebral aspergillosis [Fatal]
  - Subarachnoid haemorrhage [Fatal]
  - Brain herniation [Fatal]
  - Coma [Fatal]
  - Off label use [Unknown]

NARRATIVE: CASE EVENT DATE: 20231101
